FAERS Safety Report 8941838 (Version 1)
Quarter: 2012Q4

REPORT INFORMATION
  Report Type: 
  Country: PL (occurrence: PL)
  Receive Date: 20121203
  Receipt Date: 20121203
  Transmission Date: 20130627
  Serious: Yes (Death)
  Sender: FDA-Public Use
  Company Number: PL-PFIZER INC-2012268850

PATIENT
  Age: 70 Year
  Sex: Male
  Weight: 90.7 kg

DRUGS (2)
  1. TEMSIROLIMUS [Suspect]
     Indication: MANTLE CELL LYMPHOMA
     Dosage: 75 mg, once weekly
     Route: 042
     Dates: start: 20120117, end: 20120207
  2. DESIPRAMINE [Suspect]
     Indication: MANTLE CELL LYMPHOMA
     Dosage: 50 mg, weekly for 2 weeks
     Route: 048
     Dates: start: 20120110, end: 20120117

REACTIONS (2)
  - Disease progression [Fatal]
  - Mantle cell lymphoma [Fatal]
